FAERS Safety Report 4926226-6 (Version None)
Quarter: 2006Q1

REPORT INFORMATION
  Report Type: 
  Country: None (occurrence: None)
  Receive Date: 20060228
  Receipt Date: 20051213
  Transmission Date: 20060701
  Serious: No
  Sender: FDA-Public Use
  Company Number: US-GLAXOSMITHKLINE-A0585676A

PATIENT
  Age: 39 Year
  Sex: Male

DRUGS (3)
  1. LAMICTAL [Suspect]
     Route: 048
  2. DILANTIN [Concomitant]
  3. NEURONTIN [Concomitant]

REACTIONS (4)
  - EYE SWELLING [None]
  - RASH [None]
  - SWELLING FACE [None]
  - URTICARIA [None]
